FAERS Safety Report 8787971 (Version 2)
Quarter: 2015Q2

REPORT INFORMATION
  Report Type: Report from Study
  Country: US (occurrence: US)
  Receive Date: 20120914
  Receipt Date: 20150623
  Transmission Date: 20150821
  Serious: Yes (Death)
  Sender: FDA-Public Use
  Company Number: US-ROCHE-1127125

PATIENT
  Sex: Female

DRUGS (9)
  1. HERCEPTIN [Suspect]
     Active Substance: TRASTUZUMAB
     Indication: BREAST CANCER FEMALE
     Dosage: 9 CYCLES ALONG WITH TAXOL AND CARBOPLATIN TILL 04/JAN/2006.?THEN RECEIVED 4 CYCLES ALONG WITH GEMCIT
     Route: 065
     Dates: start: 20050504
  2. TAXOL [Suspect]
     Active Substance: PACLITAXEL
     Indication: BREAST CANCER FEMALE
     Dosage: RECEIVED 9 CYCLES ALONG WITH TRASTUZUMAB AND CARBOPLATIN TILL 04/JAN/2006.
     Route: 065
     Dates: start: 20050504
  3. XELODA [Suspect]
     Active Substance: CAPECITABINE
     Indication: BREAST CANCER FEMALE
     Dosage: TOTAL 3 CYCLES RECEIVED
     Route: 065
     Dates: start: 20060914, end: 20061116
  4. NEURONTIN [Concomitant]
     Active Substance: GABAPENTIN
  5. NAVELBINE [Concomitant]
     Active Substance: VINORELBINE TARTRATE
     Route: 065
  6. CARBOPLATIN. [Concomitant]
     Active Substance: CARBOPLATIN
     Dosage: TOTAL 9 CYCLES RECEIVED ALONG WITH TAXOL AND TRASTUZUMAB
     Route: 065
     Dates: start: 20050504, end: 20060104
  7. ASPIRIN. [Concomitant]
     Active Substance: ASPIRIN
  8. AVASTIN [Suspect]
     Active Substance: BEVACIZUMAB
     Indication: BREAST CANCER FEMALE
     Route: 065
     Dates: start: 20070301
  9. GEMCITABINE [Concomitant]
     Active Substance: GEMCITABINE\GEMCITABINE HYDROCHLORIDE
     Dosage: 4 CYCLES ALONG WITH TRASTUZUMAB
     Route: 065
     Dates: start: 20060210, end: 20060420

REACTIONS (11)
  - Hydronephrosis [Unknown]
  - Palmar-plantar erythrodysaesthesia syndrome [Unknown]
  - Metastatic neoplasm [Unknown]
  - Confusional state [Unknown]
  - Rash pruritic [Unknown]
  - Erythema [Unknown]
  - Herpes zoster [Unknown]
  - Oedema peripheral [Unknown]
  - Death [Fatal]
  - Amnesia [Unknown]
  - Swelling [Unknown]
